FAERS Safety Report 10177936 (Version 1)
Quarter: 2014Q2

REPORT INFORMATION
  Report Type: Spontaneous
  Country: CN (occurrence: CN)
  Receive Date: 20140516
  Receipt Date: 20140516
  Transmission Date: 20141212
  Serious: Yes (Hospitalization)
  Sender: FDA-Public Use
  Company Number: PHHY2014CN059117

PATIENT
  Age: 39 Year
  Sex: Male

DRUGS (3)
  1. LOTENSIN [Suspect]
     Dosage: 10 MG, QD
     Route: 048
     Dates: start: 20130802, end: 20130806
  2. HYDROCHLOROTHIAZIDE [Concomitant]
     Dosage: 25 MG, BID
     Route: 048
     Dates: start: 20130802, end: 20130806
  3. TRIAMTERENE [Concomitant]
     Dosage: 50 MG, BID
     Route: 048
     Dates: start: 20130802, end: 20130806

REACTIONS (3)
  - Renal failure acute [Recovering/Resolving]
  - Renal tubular disorder [Recovering/Resolving]
  - Renal tubular necrosis [Recovering/Resolving]
